FAERS Safety Report 9921376 (Version 1)
Quarter: 2014Q1

REPORT INFORMATION
  Report Type: Spontaneous
  Country: DE (occurrence: DE)
  Receive Date: 20140225
  Receipt Date: 20140225
  Transmission Date: 20141002
  Serious: Yes (Congenital Anomaly, Other)
  Sender: FDA-Public Use
  Company Number: DE-TEVA-462326GER

PATIENT
  Age: 1 Day
  Sex: Female

DRUGS (3)
  1. CITALOPRAM [Suspect]
     Route: 064
  2. L-THYROXIN [Concomitant]
     Route: 064
  3. NUTRIFEM [Concomitant]
     Indication: PROPHYLAXIS OF NEURAL TUBE DEFECT
     Route: 064

REACTIONS (4)
  - Atrial septal defect [Unknown]
  - Feeding disorder neonatal [Recovered/Resolved]
  - Somnolence [Recovered/Resolved]
  - Pulmonary valve stenosis congenital [Not Recovered/Not Resolved]
